FAERS Safety Report 16652614 (Version 1)
Quarter: 2019Q3

REPORT INFORMATION
  Report Type: Spontaneous
  Country: US (occurrence: US)
  Receive Date: 20190731
  Receipt Date: 20190731
  Transmission Date: 20191004
  Serious: Yes (Hospitalization)
  Sender: FDA-Public Use
  Company Number: None

PATIENT
  Age: 76 Year
  Sex: Female

DRUGS (8)
  1. RA CALCIUM, SINGULAIR [Concomitant]
  2. BONIVA, CALCIUM, CLARINEX [Concomitant]
  3. MULTI-VITAMIN, NORVASC, PLAQUENIL [Concomitant]
  4. ENBREL [Suspect]
     Active Substance: ETANERCEPT
     Indication: RHEUMATOID ARTHRITIS
     Dosage: ??          OTHER FREQUENCY:WEEKLY;?
     Route: 058
     Dates: start: 20070920
  5. POTASSIUM, PREDNISONE, PRILOSEC [Concomitant]
  6. INCRUSE, LASIX, LOPRESSOR [Concomitant]
  7. DIOVAN, EVOXAC, FLONASE [Concomitant]
  8. SYNTHROID, TRELEGY [Concomitant]

REACTIONS (1)
  - Fracture [None]

NARRATIVE: CASE EVENT DATE: 20190603
